FAERS Safety Report 9016006 (Version 4)
Quarter: 2013Q3

REPORT INFORMATION
  Report Type: Report from Study
  Country: CA (occurrence: CA)
  Receive Date: 20130116
  Receipt Date: 20130705
  Transmission Date: 20140515
  Serious: Yes (Hospitalization)
  Sender: FDA-Public Use
  Company Number: CA-INCYTE CORPORATION-2013IN000088

PATIENT
  Age: 77 Year
  Sex: Female

DRUGS (3)
  1. JAKAVI [Suspect]
     Indication: MYELOFIBROSIS
     Dosage: 15 MG, BID
     Route: 048
     Dates: start: 201211
  2. JAKAVI [Suspect]
     Dosage: 15 MG, BID
     Route: 048
     Dates: start: 20130416
  3. FORTEO [Concomitant]

REACTIONS (13)
  - Gallbladder disorder [Unknown]
  - Pulmonary oedema [Unknown]
  - Ascites [Unknown]
  - Oedema peripheral [Unknown]
  - Vision blurred [None]
  - Palpitations [None]
  - Asthenia [None]
  - Dysphagia [None]
  - Pyrexia [None]
  - Haemoglobin decreased [Unknown]
  - Faeces soft [Not Recovered/Not Resolved]
  - Blood potassium increased [Unknown]
  - Abdominal pain upper [Unknown]
